FAERS Safety Report 7802202-0 (Version None)
Quarter: 2011Q4

REPORT INFORMATION
  Report Type: 
  Country: None (occurrence: None)
  Receive Date: 20111007
  Receipt Date: 20110928
  Transmission Date: 20120403
  Serious: Yes (Hospitalization, Other)
  Sender: FDA-Public Use
  Company Number: US-JNJFOC-20110208709

PATIENT
  Sex: Female
  Weight: 70.76 kg

DRUGS (6)
  1. REMICADE [Suspect]
     Route: 042
     Dates: start: 20100602
  2. REMICADE [Suspect]
     Indication: CROHN'S DISEASE
     Route: 042
     Dates: start: 20020412
  3. REMICADE [Suspect]
     Route: 042
     Dates: start: 20060908
  4. REMICADE [Suspect]
     Route: 042
  5. AZATHIOPRINE [Concomitant]
  6. ANTIDEPRESSANTS [Concomitant]

REACTIONS (5)
  - ISCHAEMIC STROKE [None]
  - ROAD TRAFFIC ACCIDENT [None]
  - SPINAL OPERATION [None]
  - BACK PAIN [None]
  - CONVULSION [None]
